FAERS Safety Report 24904955 (Version 1)
Quarter: 2025Q1

REPORT INFORMATION
  Report Type: Report from Study
  Country: PK (occurrence: PK)
  Receive Date: 20250130
  Receipt Date: 20250130
  Transmission Date: 20250409
  Serious: Yes (Death)
  Sender: ROCHE
  Company Number: PK-ROCHE-10000171276

PATIENT
  Age: 31 Year
  Sex: Female

DRUGS (6)
  1. AVASTIN [Suspect]
     Active Substance: BEVACIZUMAB
     Indication: Cervix carcinoma
     Route: 040
     Dates: start: 20240918
  2. AVASTIN [Suspect]
     Active Substance: BEVACIZUMAB
     Route: 040
  3. AVASTIN [Suspect]
     Active Substance: BEVACIZUMAB
     Route: 040
  4. AVASTIN [Suspect]
     Active Substance: BEVACIZUMAB
     Route: 040
  5. AVASTIN [Suspect]
     Active Substance: BEVACIZUMAB
     Route: 040
  6. AVASTIN [Suspect]
     Active Substance: BEVACIZUMAB
     Route: 040

REACTIONS (2)
  - Weight decreased [Unknown]
  - Cervix carcinoma [Fatal]

NARRATIVE: CASE EVENT DATE: 20250106
